FAERS Safety Report 15713619 (Version 2)
Quarter: 2019Q1

REPORT INFORMATION
  Report Type: Spontaneous
  Country: US (occurrence: US)
  Receive Date: 20181212
  Receipt Date: 20190325
  Transmission Date: 20190417
  Serious: Yes (Hospitalization)
  Sender: FDA-Public Use
  Company Number: US-PFIZER INC-2018163411

PATIENT
  Age: 72 Year
  Sex: Female
  Weight: 84.37 kg

DRUGS (2)
  1. PREMARIN [Suspect]
     Active Substance: ESTROGENS, CONJUGATED
     Indication: HORMONE THERAPY
     Dosage: 1.25 MG, DAILY
  2. PREMARIN [Suspect]
     Active Substance: ESTROGENS, CONJUGATED
     Indication: MENOPAUSE
     Dosage: 1.25 MG, 1X/DAY
     Route: 048
     Dates: end: 201711

REACTIONS (6)
  - Dyspnoea [Unknown]
  - Panic attack [Unknown]
  - Asthma [Unknown]
  - Chest pain [Unknown]
  - Malaise [Unknown]
  - Thyroid disorder [Unknown]
